FAERS Safety Report 8169271-2 (Version None)
Quarter: 2012Q1

REPORT INFORMATION
  Report Type: 
  Country: None (occurrence: None)
  Receive Date: 20120228
  Receipt Date: 20120216
  Transmission Date: 20120608
  Serious: Yes (Other)
  Sender: FDA-Public Use
  Company Number: CN-ASTRAZENECA-2012SE03795

PATIENT
  Age: 25 Year
  Sex: Male

DRUGS (1)
  1. PRILOSEC [Suspect]
     Indication: DUODENAL ULCER
     Route: 048

REACTIONS (1)
  - MELAENA [None]
